FAERS Safety Report 5915589-0 (Version None)
Quarter: 2008Q4

REPORT INFORMATION
  Report Type: 
  Country: None (occurrence: None)
  Receive Date: 20081010
  Receipt Date: 20080908
  Transmission Date: 20090506
  Serious: No
  Sender: FDA-Public Use
  Company Number: A0746314A

PATIENT
  Age: 60 Year
  Sex: Female

DRUGS (15)
  1. TYKERB [Suspect]
     Indication: BREAST CANCER
     Dosage: 5TAB PER DAY
     Route: 048
     Dates: start: 20080828, end: 20080831
  2. TAXOL [Suspect]
     Indication: DRUG USE FOR UNKNOWN INDICATION
     Route: 065
     Dates: start: 20080829
  3. GEODON [Concomitant]
  4. OXYCONTIN [Concomitant]
  5. LAMICTAL [Concomitant]
  6. KLONOPIN [Concomitant]
  7. NEURONTIN [Concomitant]
  8. COREG CR [Concomitant]
  9. ZANAFLEX [Concomitant]
  10. ACCUPRIL [Concomitant]
  11. CRESTOR [Concomitant]
  12. ZOLOFT [Concomitant]
  13. LASIX [Concomitant]
  14. ADDERALL 10 [Concomitant]
  15. LORTAB [Concomitant]

REACTIONS (6)
  - DIARRHOEA [None]
  - HYPERHIDROSIS [None]
  - MALAISE [None]
  - NAUSEA [None]
  - PALPITATIONS [None]
  - VOMITING [None]
